FAERS Safety Report 5903428-3 (Version None)
Quarter: 2008Q3

REPORT INFORMATION
  Report Type: 
  Country: None (occurrence: None)
  Receive Date: 20080926
  Receipt Date: 20080912
  Transmission Date: 20090109
  Serious: Yes (Death)
  Sender: FDA-Public Use
  Company Number: CHPA2008US15600

PATIENT
  Age: 4 Month
  Sex: Female

DRUGS (4)
  1. PSEUDOEPHEDRINE HCL [Suspect]
  2. DEXTROMETHORPHAN HYDROBROMIDE [Suspect]
  3. CARBINOXAMINE MALEATE [Suspect]
  4. ATROPINE [Suspect]

REACTIONS (1)
  - SUDDEN INFANT DEATH SYNDROME [None]
